FAERS Safety Report 4723900-1 (Version None)
Quarter: 2005Q3

REPORT INFORMATION
  Report Type: 
  Country: None (occurrence: None)
  Receive Date: 20050725
  Receipt Date: 20050610
  Transmission Date: 20060218
  Serious: Yes (Hospitalization, Other)
  Sender: FDA-Public Use
  Company Number: JP-BRISTOL-MYERS SQUIBB COMPANY-13005483

PATIENT
  Age: 58 Year
  Sex: Male

DRUGS (9)
  1. RESLIN [Suspect]
     Indication: INSOMNIA
     Route: 048
     Dates: start: 20050511, end: 20050531
  2. TAKEPRON [Suspect]
     Indication: GASTRITIS
     Dates: start: 20050511, end: 20050531
  3. LIPOVAS [Suspect]
     Indication: HYPERLIPIDAEMIA
     Dates: start: 20000906, end: 20050531
  4. AMOBAN [Concomitant]
     Dates: start: 20050511
  5. GASLON N [Concomitant]
     Dates: start: 19960108
  6. DIART [Concomitant]
     Dates: start: 20001129
  7. THYRADIN S [Concomitant]
     Dates: start: 20031008
  8. PARACLODIN [Concomitant]
     Dates: start: 19960130
  9. ISOSORBIDE MONONITRATE [Concomitant]
     Dates: start: 20030813

REACTIONS (4)
  - ASPARTATE AMINOTRANSFERASE INCREASED [None]
  - BLOOD CREATINE PHOSPHOKINASE INCREASED [None]
  - BLOOD LACTATE DEHYDROGENASE INCREASED [None]
  - DRUG INTERACTION [None]
